FAERS Safety Report 16420417 (Version 2)
Quarter: 2019Q2

REPORT INFORMATION
  Report Type: Spontaneous
  Country: FR (occurrence: FR)
  Receive Date: 20190612
  Receipt Date: 20190619
  Transmission Date: 20190711
  Serious: Yes (Other)
  Sender: FDA-Public Use
  Company Number: FR-PFIZER INC-2019242375

PATIENT
  Age: 33 Year
  Sex: Male
  Weight: 109 kg

DRUGS (8)
  1. ENTRESTO [Suspect]
     Active Substance: SACUBITRIL\VALSARTAN
     Dosage: 2 DF, 1X/DAY (49/51 MG)
     Route: 048
     Dates: start: 20190430, end: 2019
  2. LASILIX [FUROSEMIDE] [Suspect]
     Active Substance: FUROSEMIDE
     Dosage: 20 MG, UNK
  3. ELIQUIS [Concomitant]
     Active Substance: APIXABAN
     Dosage: 10 MG, UNK
     Dates: start: 20190311
  4. KREDEX [Concomitant]
     Active Substance: CARVEDILOL
     Dosage: 2 DF, UNK (2 DF OF 9.375  MG)
     Dates: start: 20190311
  5. INSPRA [Suspect]
     Active Substance: EPLERENONE
     Dosage: 50 MG (24/26 MG), UNK
     Dates: start: 20190311, end: 2019
  6. ENTRESTO [Suspect]
     Active Substance: SACUBITRIL\VALSARTAN
     Indication: CARDIAC FAILURE
     Dosage: 50 MG, UNK (24/26MG)
  7. ENTRESTO [Suspect]
     Active Substance: SACUBITRIL\VALSARTAN
     Indication: EJECTION FRACTION
     Dosage: 50 MG (24/26), UNK
     Dates: start: 201904, end: 201904
  8. NORSET [Concomitant]
     Active Substance: MIRTAZAPINE
     Dosage: 15 MG, UNK
     Dates: start: 20190311

REACTIONS (3)
  - Hypotension [Recovering/Resolving]
  - Acute kidney injury [Recovering/Resolving]
  - Dizziness [Recovered/Resolved]

NARRATIVE: CASE EVENT DATE: 20190502
